FAERS Safety Report 7547160-1 (Version None)
Quarter: 2011Q2

REPORT INFORMATION
  Report Type: 
  Country: None (occurrence: None)
  Receive Date: 20110614
  Receipt Date: 20110609
  Transmission Date: 20111010
  Serious: Yes (Congenital Anomaly, Other)
  Sender: FDA-Public Use
  Company Number: US-PFIZER INC-2008049855

PATIENT
  Sex: Male

DRUGS (6)
  1. ADVAIR DISKUS 100/50 [Concomitant]
     Dosage: 500/50MCG
  2. ORTHO TRI-CYCLEN [Concomitant]
     Dosage: UNK
  3. FLONASE [Concomitant]
     Dosage: UNK
  4. ZOLOFT [Suspect]
     Indication: DEPRESSION
     Dosage: 100 MG, 1X/DAY
     Route: 064
     Dates: start: 20050101
  5. MONTELUKAST [Concomitant]
     Dosage: 10 MG, 1X/DAY
  6. SALBUTAMOL [Concomitant]
     Dosage: UNK

REACTIONS (7)
  - PNEUMONIA [None]
  - CONVULSION [None]
  - DRUG EXPOSURE DURING PREGNANCY [None]
  - PERSISTENT FOETAL CIRCULATION [None]
  - DEVELOPMENTAL DELAY [None]
  - KIDNEY ENLARGEMENT [None]
  - CEREBRAL HAEMORRHAGE [None]
